FAERS Safety Report 5839833-3 (Version None)
Quarter: 2008Q3

REPORT INFORMATION
  Report Type: 
  Country: None (occurrence: None)
  Receive Date: 20080807
  Receipt Date: 20080807
  Transmission Date: 20090109
  Serious: Yes (Hospitalization)
  Sender: FDA-Public Use
  Company Number: None

PATIENT
  Age: 68 Year
  Sex: Male
  Weight: 98.4306 kg

DRUGS (2)
  1. PACLITAXEL [Suspect]
     Indication: INVESTIGATION
     Dosage: 80 MG/M2  WEEKLY  IV
     Route: 042
     Dates: start: 20080513, end: 20080701
  2. CETUXIMAB [Suspect]
     Indication: INVESTIGATION
     Dosage: 250 MG/M2 WEEKLY IV
     Route: 042
     Dates: start: 20080513, end: 20080708

REACTIONS (4)
  - ASTHENIA [None]
  - FATIGUE [None]
  - PERIPHERAL SENSORY NEUROPATHY [None]
  - RENAL FAILURE ACUTE [None]
